FAERS Safety Report 7345614-4 (Version None)
Quarter: 2011Q1

REPORT INFORMATION
  Report Type: 
  Country: None (occurrence: None)
  Receive Date: 20110310
  Receipt Date: 20110303
  Transmission Date: 20110831
  Serious: Yes (Death, Hospitalization)
  Sender: FDA-Public Use
  Company Number: A0900388A

PATIENT
  Age: 77 Year
  Sex: Female

DRUGS (7)
  1. OXYGEN [Concomitant]
  2. FRAGMIN [Concomitant]
  3. NORVASC [Concomitant]
  4. VOTRIENT [Suspect]
     Indication: RENAL CANCER
     Dosage: 200MG UNKNOWN
     Route: 048
     Dates: start: 20101105, end: 20101203
  5. LOMOTIL [Concomitant]
  6. MIRTAZAPINE [Concomitant]
  7. ONDANSETRON [Concomitant]

REACTIONS (9)
  - DEATH [None]
  - RENAL CANCER [None]
  - NAUSEA [None]
  - VOMITING [None]
  - FAILURE TO THRIVE [None]
  - PAIN [None]
  - CHRONIC OBSTRUCTIVE PULMONARY DISEASE [None]
  - METASTASES TO LUNG [None]
  - DRUG INEFFECTIVE [None]
